FAERS Safety Report 10070374 (Version 1)
Quarter: 2014Q2

REPORT INFORMATION
  Report Type: Spontaneous
  Country: US (occurrence: None)
  Receive Date: 20140409
  Receipt Date: 20140409
  Transmission Date: 20141212
  Serious: Yes (Hospitalization)
  Sender: FDA-Public Use
  Company Number: None

PATIENT
  Age: 55 Year
  Sex: Male
  Weight: 111.4 kg

DRUGS (2)
  1. GEMCITABINE HYDROCHLORIDE [Suspect]
  2. SUNITINIB MALATE [Suspect]
     Dosage: 1050 MG, WILL CHECK WITH PATIENT IF TOOK DURING HOSPITALIZATION

REACTIONS (7)
  - Device occlusion [None]
  - Haematuria [None]
  - Hyperhidrosis [None]
  - Tachypnoea [None]
  - Hypotension [None]
  - Thrombosis [None]
  - Liver function test abnormal [None]
